FAERS Safety Report 11713330 (Version 1)
Quarter: 2015Q4

REPORT INFORMATION
  Report Type: Spontaneous
  Country: FR (occurrence: FR)
  Receive Date: 20151109
  Receipt Date: 20151109
  Transmission Date: 20160304
  Serious: Yes (Hospitalization, Other)
  Sender: FDA-Public Use
  Company Number: FR-ACCORD-035190

PATIENT
  Age: 51 Year
  Sex: Male

DRUGS (14)
  1. XATRAL [Concomitant]
     Active Substance: ALFUZOSIN
     Dosage: ONE TABLET IN THE MORNING
  2. SOLUPRED [Concomitant]
     Active Substance: PREDNISOLONE
  3. SPECIAFOLDINE [Concomitant]
     Active Substance: FOLIC ACID
     Dosage: IN THE MORNING
  4. INNOHEP [Concomitant]
     Active Substance: TINZAPARIN SODIUM
  5. CISPLATIN ACCORD [Suspect]
     Active Substance: CISPLATIN
     Indication: ADENOCARCINOMA
     Dosage: STRENGTH: 1 MG/ML?DOSE: 56.25 MG/M2 FROM 02-SEP-2015 TO 03-SEP-2015
     Route: 042
  6. ALIMTA [Suspect]
     Active Substance: PEMETREXED DISODIUM
     Indication: ADENOCARCINOMA
     Dosage: STRENGTH: 500 MG?DOSE: 375 MG/M2 FROM 02-SEP-2015 TO 03-SEP-2015
     Route: 042
  7. DUROGESIC [Concomitant]
     Active Substance: FENTANYL
     Dosage: 1/72
  8. METFORMIN [Concomitant]
     Active Substance: METFORMIN HYDROCHLORIDE
     Dosage: IN THE MORNING
  9. LYRICA [Concomitant]
     Active Substance: PREGABALIN
  10. ACTISKENAN [Concomitant]
     Active Substance: MORPHINE SULFATE
     Indication: PAIN
     Dosage: 10 MG/4 HOURS IF PAIN
  11. DOLIPRANE [Concomitant]
     Active Substance: ACETAMINOPHEN
     Dosage: 1 G PER 6 HOURS
  12. ISOPTINE [Concomitant]
     Active Substance: VERAPAMIL HYDROCHLORIDE
  13. EMEND [Concomitant]
     Active Substance: APREPITANT
  14. PRIMPERAN [Concomitant]
     Active Substance: METOCLOPRAMIDE HYDROCHLORIDE
     Dosage: ANHYDROUS METOCLOPRAMIDE HYDROCHLORIDE

REACTIONS (5)
  - Pneumonia [Recovered/Resolved]
  - Systemic inflammatory response syndrome [Recovered/Resolved]
  - Neutropenia [Unknown]
  - Lymphopenia [Recovered/Resolved]
  - General physical health deterioration [Unknown]

NARRATIVE: CASE EVENT DATE: 20150903
